FAERS Safety Report 24877751 (Version 2)
Quarter: 2025Q1

REPORT INFORMATION
  Report Type: Spontaneous
  Country: PS (occurrence: PS)
  Receive Date: 20250123
  Receipt Date: 20250130
  Transmission Date: 20250408
  Serious: Yes (Other)
  Sender: ACCORD
  Company Number: PS-Accord-465520

PATIENT
  Age: 21 Year
  Sex: Female

DRUGS (20)
  1. ETOPOSIDE [Suspect]
     Active Substance: ETOPOSIDE
     Indication: Extra-osseous Ewing^s sarcoma metastatic
     Dates: start: 2022
  2. CYCLOPHOSPHAMIDE [Suspect]
     Active Substance: CYCLOPHOSPHAMIDE
     Indication: Extra-osseous Ewing^s sarcoma metastatic
     Dates: start: 2022
  3. DOXORUBICIN [Suspect]
     Active Substance: DOXORUBICIN
     Indication: Extra-osseous Ewing^s sarcoma metastatic
     Dates: start: 2022
  4. IFOSFAMIDE [Suspect]
     Active Substance: IFOSFAMIDE
     Indication: Extra-osseous Ewing^s sarcoma metastatic
     Dates: start: 2022
  5. VINCRISTINE [Suspect]
     Active Substance: VINCRISTINE
     Indication: Extra-osseous Ewing^s sarcoma metastatic
     Dates: start: 2022
  6. ETOPOSIDE [Suspect]
     Active Substance: ETOPOSIDE
     Indication: Metastases to breast
     Dates: start: 2022
  7. ETOPOSIDE [Suspect]
     Active Substance: ETOPOSIDE
     Indication: Metastases to pleura
     Dates: start: 2022
  8. ETOPOSIDE [Suspect]
     Active Substance: ETOPOSIDE
     Indication: Metastases to lung
     Dates: start: 2022
  9. CYCLOPHOSPHAMIDE [Suspect]
     Active Substance: CYCLOPHOSPHAMIDE
     Indication: Metastases to breast
     Dates: start: 2022
  10. CYCLOPHOSPHAMIDE [Suspect]
     Active Substance: CYCLOPHOSPHAMIDE
     Indication: Metastases to pleura
     Dates: start: 2022
  11. CYCLOPHOSPHAMIDE [Suspect]
     Active Substance: CYCLOPHOSPHAMIDE
     Indication: Metastases to lung
     Dates: start: 2022
  12. DOXORUBICIN [Suspect]
     Active Substance: DOXORUBICIN
     Indication: Metastases to breast
     Dates: start: 2022
  13. DOXORUBICIN [Suspect]
     Active Substance: DOXORUBICIN
     Indication: Metastases to pleura
     Dates: start: 2022
  14. DOXORUBICIN [Suspect]
     Active Substance: DOXORUBICIN
     Indication: Metastases to lung
     Dates: start: 2022
  15. IFOSFAMIDE [Suspect]
     Active Substance: IFOSFAMIDE
     Indication: Metastases to lung
     Dates: start: 2022
  16. IFOSFAMIDE [Suspect]
     Active Substance: IFOSFAMIDE
     Indication: Metastases to pleura
     Dates: start: 2022
  17. IFOSFAMIDE [Suspect]
     Active Substance: IFOSFAMIDE
     Indication: Metastases to breast
     Dates: start: 2022
  18. VINCRISTINE [Suspect]
     Active Substance: VINCRISTINE
     Indication: Metastases to breast
     Dates: start: 2022
  19. VINCRISTINE [Suspect]
     Active Substance: VINCRISTINE
     Indication: Metastases to pleura
     Dates: start: 2022
  20. VINCRISTINE [Suspect]
     Active Substance: VINCRISTINE
     Indication: Metastases to lung
     Dates: start: 2022

REACTIONS (2)
  - Peritonitis [Recovered/Resolved]
  - Febrile neutropenia [Recovered/Resolved]

NARRATIVE: CASE EVENT DATE: 20220101
